FAERS Safety Report 6404217-6 (Version None)
Quarter: 2009Q4

REPORT INFORMATION
  Report Type: 
  Country: None (occurrence: None)
  Receive Date: 20091016
  Receipt Date: 20091011
  Transmission Date: 20100525
  Serious: Yes (Other)
  Sender: FDA-Public Use
  Company Number: US-AMGEN-QUU368471

PATIENT
  Sex: Female

DRUGS (2)
  1. NEULASTA [Suspect]
     Indication: CHEMOTHERAPY
     Route: 065
     Dates: start: 20091009
  2. GEMCITABINE [Concomitant]
     Dates: start: 20091008

REACTIONS (2)
  - CELLULITIS [None]
  - WHITE BLOOD CELL COUNT INCREASED [None]
